FAERS Safety Report 8354581-6 (Version None)
Quarter: 2012Q2

REPORT INFORMATION
  Report Type: 
  Country: None (occurrence: None)
  Receive Date: 20120511
  Receipt Date: 20120504
  Transmission Date: 20120825
  Serious: Yes (Death, Life-Threatening, Hospitalization)
  Sender: FDA-Public Use
  Company Number: DE-CELGENEUS-062-21880-12032827

PATIENT
  Age: 61 Year
  Sex: Male
  Weight: 124 kg

DRUGS (23)
  1. HYDROCHLOROTHIAZIDE [Concomitant]
     Dosage: 25 MILLIGRAM
     Route: 048
  2. TAMSULOSIN HCL [Concomitant]
     Dosage: .4 MILLIGRAM
     Route: 048
  3. GABAPENTIN [Concomitant]
     Dosage: 680 MILLIGRAM
     Route: 048
  4. RIFABUTIN [Concomitant]
     Dosage: 150 MILLIGRAM
     Route: 065
  5. ETHAMBUTOL HYDROCHLORIDE [Concomitant]
     Dosage: 2 GRAM
     Route: 048
     Dates: start: 20120412
  6. AMPHOTERICIN B [Concomitant]
     Route: 065
  7. INDAPAMID [Concomitant]
     Dosage: 1.5 MILLIGRAM
     Route: 048
  8. BENDAMUSTINE HYDROCHLORIDE [Suspect]
     Indication: CHRONIC LYMPHOCYTIC LEUKAEMIA
     Dosage: 127 MILLIGRAM
     Route: 041
     Dates: start: 20120315, end: 20120315
  9. CANDESARTAN CILEXETIL [Concomitant]
     Dosage: 16 MILLIGRAM
     Route: 048
  10. TIOTROPIUM [Concomitant]
     Dosage: 36 MICROGRAM
     Route: 048
  11. FLUTICASONE PROPIONATE/SALMETEROL [Concomitant]
     Dosage: 500 MICROGRAM
     Route: 048
  12. PANTOPRAZOLE [Concomitant]
     Dosage: 80 MILLIGRAM
     Route: 048
  13. AMLODIPINE BESYLATE [Concomitant]
     Dosage: 5 MILLIGRAM
     Route: 048
  14. TORSEMIDE [Concomitant]
     Dosage: 20 MILLIGRAM
     Route: 048
  15. ACETYLSALICYLIC ACID SRT [Concomitant]
     Dosage: 100 MILLIGRAM
     Route: 048
  16. METOPROLOL TARTRATE [Concomitant]
     Dosage: 142.5 MILLIGRAM
     Route: 048
  17. TILIDIN PLUS [Concomitant]
     Dosage: 100MG/8MG
     Route: 048
  18. RIFABUTIN [Concomitant]
     Route: 048
     Dates: start: 20120412
  19. REVLIMID [Suspect]
     Indication: CHRONIC LYMPHOCYTIC LEUKAEMIA
     Dosage: 25 MILLIGRAM
     Route: 048
     Dates: start: 20120315, end: 20120411
  20. RITUXAN [Suspect]
     Indication: CHRONIC LYMPHOCYTIC LEUKAEMIA
     Dosage: 953.9 MILLIGRAM
     Route: 041
     Dates: start: 20120314, end: 20120314
  21. METFORMIN HCL [Concomitant]
     Dosage: 2 GRAM
     Route: 048
  22. CLARITHROMYCIN [Concomitant]
     Dosage: 1 GRAM
     Route: 048
     Dates: start: 20120412
  23. DIGITOXIN TAB [Concomitant]
     Route: 048
     Dates: start: 20120412

REACTIONS (4)
  - FEBRILE NEUTROPENIA [None]
  - PNEUMONIA PRIMARY ATYPICAL [None]
  - SEPTIC SHOCK [None]
  - RESPIRATORY SYNCYTIAL VIRUS INFECTION [None]
